FAERS Safety Report 4555075-6 (Version None)
Quarter: 2005Q1

REPORT INFORMATION
  Report Type: 
  Country: None (occurrence: None)
  Receive Date: 20041228
  Receipt Date: 20040409
  Transmission Date: 20050727
  Serious: Yes (Other)
  Sender: FDA-Public Use
  Company Number: PHEH2004US04090

PATIENT
  Age: 64 Year
  Sex: Female

DRUGS (9)
  1. AREDIA [Suspect]
     Dosage: 90MG OVER 1-2 HOURS
     Dates: start: 20020201, end: 20030702
  2. ANASTROZOLE [Concomitant]
  3. CAPECITABINE (CAPECITABINE) [Concomitant]
  4. EPOETIN ALFA (EPOETIN ALFA) [Concomitant]
  5. EXEMESTANE (EXEMESTANE) [Concomitant]
  6. GEMCITABINE (GEMCITABINE) [Concomitant]
  7. PREDNISONE [Concomitant]
  8. DEXAMETHASONE [Concomitant]
  9. PROCHLORPERAZINE [Concomitant]

REACTIONS (1)
  - OSTEONECROSIS [None]
